FAERS Safety Report 7598132-2 (Version None)
Quarter: 2011Q3

REPORT INFORMATION
  Report Type: 
  Country: None (occurrence: None)
  Receive Date: 20110708
  Receipt Date: 20110629
  Transmission Date: 20111222
  Serious: Yes (Hospitalization)
  Sender: FDA-Public Use
  Company Number: US-JNJFOC-20110701594

PATIENT
  Sex: Female
  Weight: 65.77 kg

DRUGS (2)
  1. EXTRA STRENGTH TYLENOL [Suspect]
     Indication: PAIN
     Route: 048
     Dates: start: 20100101
  2. EXTRA STRENGTH TYLENOL [Suspect]
     Indication: ARTHRITIS
     Route: 048
     Dates: start: 20100101

REACTIONS (5)
  - PRODUCT TASTE ABNORMAL [None]
  - ABDOMINAL PAIN UPPER [None]
  - PRODUCT ODOUR ABNORMAL [None]
  - INTESTINAL OBSTRUCTION [None]
  - PRODUCT QUALITY ISSUE [None]
